FAERS Safety Report 18527614 (Version 2)
Quarter: 2020Q4

REPORT INFORMATION
  Report Type: Spontaneous
  Country: US (occurrence: US)
  Receive Date: 20201120
  Receipt Date: 20201217
  Transmission Date: 20210114
  Serious: No
  Sender: FDA-Public Use
  Company Number: US-ASTRAZENECA-2020SF51355

PATIENT
  Age: 23468 Day
  Sex: Female

DRUGS (1)
  1. FASENRA [Suspect]
     Active Substance: BENRALIZUMAB
     Indication: ASTHMA
     Dosage: 30.0MG UNKNOWN
     Route: 058
     Dates: start: 20201016

REACTIONS (11)
  - Injection site haemorrhage [Unknown]
  - Device leakage [Unknown]
  - Pain in extremity [Unknown]
  - Injection site extravasation [Unknown]
  - Wrong technique in device usage process [Unknown]
  - Paraesthesia oral [Unknown]
  - Injection site pain [Unknown]
  - Muscle twitching [Unknown]
  - Oral herpes [Unknown]
  - Sciatica [Unknown]
  - Incorrect dose administered by device [Unknown]

NARRATIVE: CASE EVENT DATE: 20201016
